FAERS Safety Report 8082766 (Version 2)
Quarter: 2012Q4

REPORT INFORMATION
  Report Type: Spontaneous
  Country: US (occurrence: None)
  Receive Date: 20110801
  Receipt Date: 20121001
  Transmission Date: 20130627
  Serious: Yes (Other)
  Sender: FDA-Public Use
  Company Number: 2011MA008782

PATIENT
  Sex: Male
  Weight: 61.69 kg

DRUGS (36)
  1. METOCLOPRAMIDE [Suspect]
     Indication: NAUSEA
     Dates: start: 1981, end: 19990801
  2. METOCLOPRAMIDE [Suspect]
     Indication: STOMACH PAIN
     Dates: start: 1981, end: 19990801
  3. MAPROTILINE [Concomitant]
  4. LISINOPRIL [Concomitant]
  5. ALPRAZOLAM [Concomitant]
  6. HYDROCODONE [Concomitant]
  7. ZEGERID [Concomitant]
  8. ACETAMINOPHEN/BUTALBITAL/CAFFEINE [Concomitant]
  9. GABAPENTIN [Concomitant]
  10. CEPHALEXIN [Concomitant]
  11. HYOSCYAMINE [Concomitant]
  12. OMEPRAZOLE [Concomitant]
  13. AMOXICILLIN [Concomitant]
  14. PAROXETINE [Concomitant]
  15. ENDOCET [Concomitant]
  16. CLONAZEPAM [Concomitant]
  17. PRILOSEC [Concomitant]
  18. DICLOFENAC [Concomitant]
  19. MINOCYCLINE [Concomitant]
  20. KETOCONAZOLE [Concomitant]
  21. FLOMAX [Concomitant]
  22. METRONIDAZOLE [Concomitant]
  23. PREVACID [Concomitant]
  24. CIPROFLOXIN [Concomitant]
  25. PROPRANOLOL [Concomitant]
  26. OMNICEF [Concomitant]
  27. SUCRALFATE [Concomitant]
  28. TRAMADOL [Concomitant]
  29. ONDANSETRON [Concomitant]
  30. ULTRACET [Concomitant]
  31. ZOLOFT [Concomitant]
  32. TOPAMAX [Concomitant]
  33. MIRALAX [Concomitant]
  34. RISPERDAL [Concomitant]
  35. ZESTRIL [Concomitant]
  36. LUVOX [Concomitant]

REACTIONS (5)
  - Tardive dyskinesia [None]
  - Extrapyramidal disorder [None]
  - Economic problem [None]
  - Emotional disorder [None]
  - Dystonia [None]
